FAERS Safety Report 6941586-2 (Version None)
Quarter: 2010Q3

REPORT INFORMATION
  Report Type: 
  Country: None (occurrence: None)
  Receive Date: 20100825
  Receipt Date: 20100818
  Transmission Date: 20110219
  Serious: Yes (Hospitalization)
  Sender: FDA-Public Use
  Company Number: US-US-EMD SERONO, INC.-7014888

PATIENT
  Sex: Female
  Weight: 66 kg

DRUGS (5)
  1. REBIF [Suspect]
     Indication: MULTIPLE SCLEROSIS
     Route: 058
     Dates: start: 20080730, end: 20090201
  2. REBIF [Suspect]
     Route: 058
     Dates: start: 20100712
  3. PERCOCET [Concomitant]
     Indication: PAIN
  4. AMBIEN [Concomitant]
     Indication: SLEEP DISORDER
  5. KLONOPIN [Concomitant]
     Indication: NERVOUS SYSTEM DISORDER

REACTIONS (5)
  - DEHYDRATION [None]
  - MUSCLE SPASMS [None]
  - NAUSEA [None]
  - RETCHING [None]
  - STRESS [None]
